FAERS Safety Report 19215799 (Version 2)
Quarter: 2022Q3

REPORT INFORMATION
  Report Type: Spontaneous
  Country: US (occurrence: US)
  Receive Date: 20210505
  Receipt Date: 20220927
  Transmission Date: 20221026
  Serious: Yes (Death, Other)
  Sender: FDA-Public Use
  Company Number: US-SA-SAC20210503001208

PATIENT
  Age: 54 Year
  Sex: Male

DRUGS (2)
  1. ZANTAC [Suspect]
     Active Substance: RANITIDINE HYDROCHLORIDE
     Indication: Gastrooesophageal reflux disease
     Dosage: 75 MG, QD
     Dates: start: 200001
  2. ZANTAC [Suspect]
     Active Substance: RANITIDINE HYDROCHLORIDE
     Indication: Hyperchlorhydria
     Dosage: 150 MG, QD
     Dates: end: 201804

REACTIONS (5)
  - Oesophageal carcinoma [Fatal]
  - Renal cancer stage IV [Fatal]
  - Hepatic cancer stage IV [Fatal]
  - Gastric cancer stage IV [Fatal]
  - Haematological malignancy [Fatal]

NARRATIVE: CASE EVENT DATE: 20180401
